FAERS Safety Report 5838766-6 (Version None)
Quarter: 2008Q3

REPORT INFORMATION
  Report Type: 
  Country: None (occurrence: None)
  Receive Date: 20080808
  Receipt Date: 20080805
  Transmission Date: 20090109
  Serious: Yes (Hospitalization)
  Sender: FDA-Public Use
  Company Number: CH-BRISTOL-MYERS SQUIBB COMPANY-14169668

PATIENT
  Age: 60 Year
  Sex: Male

DRUGS (8)
  1. CETUXIMAB [Suspect]
     Indication: OESOPHAGEAL ADENOCARCINOMA
     Dosage: MOST RECENT INFUSION ON 17 APR 2008
     Route: 041
     Dates: start: 20080214
  2. CISPLATIN [Suspect]
     Indication: OESOPHAGEAL ADENOCARCINOMA
     Route: 042
     Dates: start: 20080214, end: 20080214
  3. PARAPLATIN [Suspect]
     Indication: OESOPHAGEAL ADENOCARCINOMA
     Dosage: INITIAL DOSE-700 MG,THEN 200MG WEEKLY.  MOST RECENT INFUSION ON 17 APR 2008
     Route: 042
     Dates: start: 20080306
  4. TAXOTERE [Suspect]
     Indication: OESOPHAGEAL ADENOCARCINOMA
     Dosage: INITIAL DOSE - 2*150 MG,THEN 40 MG 1/1 WK FROM 17 APR 08.
     Route: 042
     Dates: start: 20080214
  5. RADIATION THERAPY [Suspect]
     Indication: OESOPHAGEAL ADENOCARCINOMA
     Dosage: 1 DOSAGE FORM = 4.2 GY
     Dates: start: 20080327
  6. VALTREX [Concomitant]
     Dates: start: 20080417, end: 20080516
  7. NEXIUM [Concomitant]
     Dates: start: 20080211
  8. MOTILIUM [Concomitant]
     Dates: start: 20080417, end: 20080508

REACTIONS (4)
  - DEHYDRATION [None]
  - OESOPHAGEAL OBSTRUCTION [None]
  - OESOPHAGITIS [None]
  - WEIGHT DECREASED [None]
